FAERS Safety Report 4308134-7 (Version None)
Quarter: 2004Q1

REPORT INFORMATION
  Report Type: 
  Country: None (occurrence: None)
  Receive Date: 20040301
  Receipt Date: 20030606
  Transmission Date: 20041129
  Serious: No
  Sender: FDA-Public Use
  Company Number: US-BRISTOL-MYERS SQUIBB COMPANY-12295168

PATIENT
  Sex: Female
  Weight: 86 kg

DRUGS (1)
  1. GLUCOPHAGE [Suspect]
     Indication: DIABETES MELLITUS
     Route: 048
     Dates: start: 20021001

REACTIONS (2)
  - BLOOD LACTIC ACID INCREASED [None]
  - PCO2 DECREASED [None]
